FAERS Safety Report 23626312 (Version 1)
Quarter: 2024Q1

REPORT INFORMATION
  Report Type: Spontaneous
  Country: GB (occurrence: GB)
  Receive Date: 20240313
  Receipt Date: 20240313
  Transmission Date: 20240410
  Serious: Yes (Hospitalization, Other)
  Sender: FDA-Public Use
  Company Number: None

PATIENT
  Age: 49 Year
  Sex: Male

DRUGS (12)
  1. PREDNISOLONE [Suspect]
     Active Substance: PREDNISOLONE
     Indication: Immunosuppressant drug therapy
     Dosage: 5 MILLIGRAM/DAY
     Route: 065
     Dates: start: 202306
  2. PREDNISOLONE [Suspect]
     Active Substance: PREDNISOLONE
     Dosage: UNK (ON A TAPERING DOSE)
     Route: 065
     Dates: start: 202207
  3. AZATHIOPRINE [Suspect]
     Active Substance: AZATHIOPRINE
     Indication: Immunosuppressant drug therapy
     Dosage: UNK
     Route: 065
     Dates: start: 2022, end: 2022
  4. TACROLIMUS [Suspect]
     Active Substance: TACROLIMUS
     Indication: Immunosuppressant drug therapy
     Dosage: UNK
     Route: 065
     Dates: start: 202207, end: 2022
  5. TACROLIMUS [Suspect]
     Active Substance: TACROLIMUS
     Dosage: UNK (REDUCED)
     Route: 065
     Dates: start: 2022, end: 2022
  6. TACROLIMUS [Suspect]
     Active Substance: TACROLIMUS
     Dosage: UNK (REDUCED)
     Route: 065
     Dates: start: 2022, end: 2022
  7. TACROLIMUS [Suspect]
     Active Substance: TACROLIMUS
     Dosage: UNK (REDUCED)
     Route: 065
     Dates: start: 2022, end: 2022
  8. METHYLPREDNISOLONE [Suspect]
     Active Substance: METHYLPREDNISOLONE
     Indication: Immunosuppressant drug therapy
     Dosage: UNK
     Route: 042
     Dates: start: 202207, end: 202207
  9. BASILIXIMAB [Suspect]
     Active Substance: BASILIXIMAB
     Indication: Immunosuppressant drug therapy
     Dosage: UNK
     Route: 065
     Dates: start: 202207, end: 202207
  10. MYCOPHENOLIC ACID [Suspect]
     Active Substance: MYCOPHENOLIC ACID
     Indication: Immunosuppressant drug therapy
     Dosage: UNK
     Route: 065
     Dates: start: 202207, end: 2022
  11. MYCOPHENOLIC ACID [Suspect]
     Active Substance: MYCOPHENOLIC ACID
     Dosage: UNK (REDUCED)
     Route: 065
     Dates: start: 2022, end: 2022
  12. SULFAMETHOXAZOLE\TRIMETHOPRIM [Concomitant]
     Active Substance: SULFAMETHOXAZOLE\TRIMETHOPRIM
     Indication: Antifungal prophylaxis
     Dosage: UNK
     Route: 065
     Dates: start: 202207

REACTIONS (2)
  - Aplasia pure red cell [Recovered/Resolved]
  - Parvovirus B19 infection [Recovered/Resolved]

NARRATIVE: CASE EVENT DATE: 20220101
